FAERS Safety Report 22934326 (Version 5)
Quarter: 2024Q1

REPORT INFORMATION
  Report Type: Report from Study
  Country: CA (occurrence: CA)
  Receive Date: 20230912
  Receipt Date: 20240214
  Transmission Date: 20240410
  Serious: Yes (Other)
  Sender: FDA-Public Use
  Company Number: CA-002147023-NVSC2021CA160240

PATIENT
  Age: 50 Year
  Sex: Female

DRUGS (3)
  1. HYRIMOZ [Suspect]
     Active Substance: ADALIMUMAB-ADAZ
     Indication: Crohn^s disease
     Dosage: 40 MG
     Route: 058
     Dates: start: 20210623
  2. HYRIMOZ [Suspect]
     Active Substance: ADALIMUMAB-ADAZ
     Dosage: 40 MG
     Route: 058
     Dates: start: 20210707
  3. PANTOPRAZOLE [Concomitant]
     Active Substance: PANTOPRAZOLE
     Indication: Product used for unknown indication
     Dosage: UNK
     Route: 065

REACTIONS (30)
  - Facial paralysis [Unknown]
  - Syncope [Unknown]
  - Uveitis [Unknown]
  - Brain fog [Unknown]
  - Blood pressure decreased [Unknown]
  - Blood pressure abnormal [Unknown]
  - Abdominal distension [Unknown]
  - Constipation [Unknown]
  - Dizziness [Unknown]
  - Malaise [Unknown]
  - Abdominal pain [Unknown]
  - Tremor [Unknown]
  - Dyspnoea [Unknown]
  - Muscle twitching [Unknown]
  - Chest pain [Unknown]
  - Headache [Unknown]
  - Hypertension [Unknown]
  - Arthralgia [Unknown]
  - Pain [Unknown]
  - Influenza [Unknown]
  - Diarrhoea [Unknown]
  - Fatigue [Unknown]
  - Wrong technique in device usage process [Unknown]
  - Incorrect dose administered [Unknown]
  - Accidental exposure to product [Unknown]
  - COVID-19 [Unknown]
  - Abdominal pain upper [Unknown]
  - Fatigue [Unknown]
  - Constipation [Unknown]
  - Asthenia [Unknown]

NARRATIVE: CASE EVENT DATE: 20210713
